FAERS Safety Report 9055945 (Version 1)
Quarter: 2013Q1

REPORT INFORMATION
  Report Type: Spontaneous
  Country: US (occurrence: US)
  Receive Date: 20130206
  Receipt Date: 20130206
  Transmission Date: 20140127
  Serious: No
  Sender: FDA-Public Use
  Company Number: US-ALLERGAN-1200114US

PATIENT
  Sex: Female
  Weight: 128 kg

DRUGS (13)
  1. RESTASIS? [Suspect]
     Indication: DRY EYE
     Dosage: UNK
     Route: 047
     Dates: start: 201012, end: 201112
  2. PLAVIX                             /01220701/ [Concomitant]
  3. ASPIRIN [Concomitant]
  4. ATENOLOL [Concomitant]
     Indication: HYPERTENSION
  5. PANTOPRAZOLE [Concomitant]
  6. SIMVASTATIN [Concomitant]
  7. RAMIPRIL [Concomitant]
  8. DOXYCYCLINE [Concomitant]
  9. CALCIUM [Concomitant]
  10. MAGNESIUM CITRATE [Concomitant]
  11. B12 [Concomitant]
  12. BIOTIN [Concomitant]
  13. GINKGO BILOBA [Concomitant]

REACTIONS (3)
  - Eye irritation [Unknown]
  - Ocular hyperaemia [Unknown]
  - Lacrimation increased [Unknown]
